FAERS Safety Report 7377441-6 (Version None)
Quarter: 2011Q1

REPORT INFORMATION
  Report Type: 
  Country: None (occurrence: None)
  Receive Date: 20110328
  Receipt Date: 20110323
  Transmission Date: 20110831
  Serious: No
  Sender: FDA-Public Use
  Company Number: US-PFIZER INC-2011049908

PATIENT
  Sex: Female
  Weight: 58.957 kg

DRUGS (5)
  1. PRISTIQ [Suspect]
     Indication: MENOPAUSE
  2. PRISTIQ [Suspect]
     Indication: MAJOR DEPRESSION
     Dosage: 50 MG, 1X/DAY
     Route: 048
     Dates: start: 20110223
  3. LORAZEPAM [Suspect]
     Indication: SLEEP DISORDER
     Dosage: 0.5 MG DAILY
     Route: 048
  4. PROZAC [Concomitant]
     Indication: PREMENSTRUAL SYNDROME
     Dosage: 20 MG, 1X/DAY
     Route: 048
  5. EFFEXOR [Suspect]
     Dosage: 37.5 MG DAILY
     Route: 048

REACTIONS (4)
  - DRUG INEFFECTIVE [None]
  - ABNORMAL DREAMS [None]
  - INSOMNIA [None]
  - DEPRESSION [None]
